FAERS Safety Report 9901739 (Version 2)
Quarter: 2014Q1

REPORT INFORMATION
  Report Type: Spontaneous
  Country: US (occurrence: US)
  Receive Date: 20140217
  Receipt Date: 20140320
  Transmission Date: 20141002
  Serious: No
  Sender: FDA-Public Use
  Company Number: US-009507513-1402USA007638

PATIENT
  Sex: Male

DRUGS (2)
  1. INTEGRILIN [Suspect]
     Dosage: UNK
  2. INTEGRILIN [Suspect]
     Dosage: UNK

REACTIONS (2)
  - Thrombocytopenia [Recovered/Resolved]
  - Thrombocytopenia [Recovered/Resolved]
